FAERS Safety Report 12913820 (Version 1)
Quarter: 2016Q4

REPORT INFORMATION
  Report Type: Spontaneous
  Country: US (occurrence: US)
  Receive Date: 20161105
  Receipt Date: 20161105
  Transmission Date: 20170207
  Serious: No
  Sender: FDA-Public Use
  Company Number: US-AUROBINDO-AUR-APL-2015-11088

PATIENT
  Sex: Female
  Weight: 72.57 kg

DRUGS (1)
  1. METOPROLOL. [Suspect]
     Active Substance: METOPROLOL
     Indication: HEART RATE IRREGULAR
     Dosage: 12.5 MG, EVERY OTHER DAY OR DAILY AS NEEDED
     Route: 048

REACTIONS (1)
  - Product use issue [Unknown]
